FAERS Safety Report 24322375 (Version 4)
Quarter: 2024Q4

REPORT INFORMATION
  Report Type: Report from Study
  Country: US (occurrence: US)
  Receive Date: 20240916
  Receipt Date: 20241029
  Transmission Date: 20250114
  Serious: Yes (Other)
  Sender: ABBVIE
  Company Number: US-ABBVIE-5916331

PATIENT
  Age: 69 Year
  Sex: Female

DRUGS (3)
  1. HUMIRA [Suspect]
     Active Substance: ADALIMUMAB
     Indication: Crohn^s disease
     Dosage: HUMIRA 40MG/0.4ML
     Route: 058
     Dates: start: 20230218
  2. HUMIRA [Suspect]
     Active Substance: ADALIMUMAB
     Dosage: 40MG/0.4ML, LAST ADMIN DATE:2024
     Route: 058
     Dates: start: 20240824
  3. HUMIRA [Suspect]
     Active Substance: ADALIMUMAB
     Dosage: 40MG/0.4ML
     Route: 058
     Dates: start: 20240921

REACTIONS (10)
  - Loss of consciousness [Recovering/Resolving]
  - COVID-19 [Unknown]
  - Contusion [Unknown]
  - Craniofacial fracture [Unknown]
  - Loose tooth [Unknown]
  - Fall [Unknown]
  - Syncope [Unknown]
  - Injury [Unknown]
  - Hunger [Unknown]
  - Blood pressure abnormal [Unknown]

NARRATIVE: CASE EVENT DATE: 20240907
